FAERS Safety Report 6705214-3 (Version None)
Quarter: 2010Q2

REPORT INFORMATION
  Report Type: 
  Country: None (occurrence: None)
  Receive Date: 20100430
  Receipt Date: 20100209
  Transmission Date: 20101027
  Serious: No
  Sender: FDA-Public Use
  Company Number: US-ASTRAZENECA-2010SE00049

PATIENT
  Age: 65 Year
  Sex: Female
  Weight: 61.7 kg

DRUGS (1)
  1. NEXIUM [Suspect]
     Indication: GASTRIC DISORDER
     Route: 048

REACTIONS (3)
  - ERYTHEMA [None]
  - HYPERHIDROSIS [None]
  - SYNCOPE [None]
